FAERS Safety Report 7768169-9 (Version None)
Quarter: 2011Q3

REPORT INFORMATION
  Report Type: 
  Country: None (occurrence: None)
  Receive Date: 20110922
  Receipt Date: 20110922
  Transmission Date: 20111222
  Serious: Yes (Hospitalization)
  Sender: FDA-Public Use
  Company Number: None

PATIENT
  Age: 44 Year
  Sex: Female
  Weight: 157.1 kg

DRUGS (1)
  1. LAMICTAL [Suspect]
     Dosage: 200 MG
     Route: 048

REACTIONS (2)
  - PNEUMONIA [None]
  - MENINGITIS ASEPTIC [None]
